FAERS Safety Report 8010966-9 (Version None)
Quarter: 2011Q4

REPORT INFORMATION
  Report Type: 
  Country: None (occurrence: None)
  Receive Date: 20111228
  Receipt Date: 20111222
  Transmission Date: 20120403
  Serious: Yes (Hospitalization)
  Sender: FDA-Public Use
  Company Number: GB-PFIZER INC-2011312364

PATIENT
  Age: 17 Year
  Sex: Female
  Weight: 51.8 kg

DRUGS (2)
  1. FLUOXETINE [Concomitant]
  2. SERTRALINE HYDROCHLORIDE [Suspect]
     Indication: DEPRESSION
     Dosage: 25 MG, UNK
     Route: 048
     Dates: start: 20111110, end: 20111122

REACTIONS (5)
  - INTENTIONAL SELF-INJURY [None]
  - CONDITION AGGRAVATED [None]
  - AGITATION [None]
  - SUICIDAL BEHAVIOUR [None]
  - SUICIDAL IDEATION [None]
